FAERS Safety Report 8840029 (Version 2)
Quarter: 2012Q4

REPORT INFORMATION
  Report Type: 
  Country: US (occurrence: US)
  Receive Date: 20121015
  Receipt Date: 20121105
  Transmission Date: 20130627
  Serious: No
  Sender: FDA-Public Use
  Company Number: US-PFIZER INC-2012254724

PATIENT
  Age: 44 Year
  Sex: Female
  Weight: 63.49 kg

DRUGS (4)
  1. CHANTIX [Suspect]
     Indication: SMOKING CESSATION THERAPY
     Dosage: UNK
     Dates: start: 20120914
  2. ZOLOFT [Concomitant]
     Indication: DEPRESSION
     Dosage: 100 mg, UNK
  3. XANAX [Concomitant]
     Indication: ANXIETY
     Dosage: 1 mg, 2x/day
  4. DIPHENOXYLATE/ATROPINE [Concomitant]
     Indication: DIGESTION IMPAIRED
     Dosage: 2.5/0.025mg, as needed

REACTIONS (2)
  - Blister [Not Recovered/Not Resolved]
  - Pruritus [Unknown]
